FAERS Safety Report 8576380-2 (Version None)
Quarter: 2012Q3

REPORT INFORMATION
  Report Type: 
  Country: None (occurrence: None)
  Receive Date: 20120807
  Receipt Date: 20120726
  Transmission Date: 20120928
  Serious: Yes (Hospitalization, Other)
  Sender: FDA-Public Use
  Company Number: US-009507513-1201USA03927

PATIENT

DRUGS (4)
  1. MK-9278 [Concomitant]
     Dates: start: 19970101
  2. FOSAMAX [Suspect]
     Indication: OSTEOPENIA
     Dosage: 10 MG, QD
     Route: 048
     Dates: start: 19980804, end: 20010101
  3. FOSAMAX [Suspect]
     Dosage: 70 MG, QD
     Route: 048
     Dates: start: 20010101, end: 20100701
  4. CALCIUM (UNSPECIFIED) [Concomitant]
     Dates: start: 19970101

REACTIONS (24)
  - HYPOVOLAEMIA [None]
  - DERMATITIS CONTACT [None]
  - FALL [None]
  - LEUKOCYTOSIS [None]
  - OSTEOPOROSIS [None]
  - ARTHROPATHY [None]
  - JOINT INJECTION [None]
  - OSTEOARTHRITIS [None]
  - HYPERTENSION [None]
  - KNEE OPERATION [None]
  - FEMUR FRACTURE [None]
  - HYPONATRAEMIA [None]
  - HYPOKALAEMIA [None]
  - GASTROOESOPHAGEAL REFLUX DISEASE [None]
  - ARTHRITIS [None]
  - LYMPHADENOPATHY [None]
  - CARPAL TUNNEL SYNDROME [None]
  - HYPERLIPIDAEMIA [None]
  - HAEMORRHAGE [None]
  - DIVERTICULITIS [None]
  - MENISCUS LESION [None]
  - URINARY TRACT INFECTION [None]
  - RENAL DISORDER [None]
  - LIMB OPERATION [None]
